FAERS Safety Report 11106344 (Version 1)
Quarter: 2015Q2

REPORT INFORMATION
  Report Type: Spontaneous
  Country: IT (occurrence: IT)
  Receive Date: 20150512
  Receipt Date: 20150512
  Transmission Date: 20150821
  Serious: Yes (Hospitalization)
  Sender: FDA-Public Use
  Company Number: IT-SA-2015SA062547

PATIENT
  Age: 81 Year
  Sex: Male

DRUGS (11)
  1. SOLOSTAR [Concomitant]
     Active Substance: DEVICE
     Dates: start: 20140101, end: 20140521
  2. KANRENOL [Concomitant]
     Active Substance: CANRENOATE POTASSIUM
     Dosage: STRENGTH: 25 MG
     Route: 048
     Dates: start: 20140101, end: 20140521
  3. LASIX [Concomitant]
     Active Substance: FUROSEMIDE
     Dosage: 500 MG
     Route: 048
     Dates: start: 20140101, end: 20140521
  4. ATENOLOL. [Concomitant]
     Active Substance: ATENOLOL
     Route: 048
     Dates: start: 20140101, end: 20140521
  5. CALCITRIOL. [Concomitant]
     Active Substance: CALCITRIOL
     Route: 048
     Dates: start: 20140501, end: 20140521
  6. ARANESP [Concomitant]
     Active Substance: DARBEPOETIN ALFA
     Dosage: 10 MCG SOLUTION FOR INJECTION 1 PRE-FILLED SYRINGE 0.4 ML SUBCUTANEOUS AND INTRAVENOUS USE
     Route: 058
     Dates: start: 20140101, end: 20140521
  7. CARDIOASPIRIN [Concomitant]
     Active Substance: ASPIRIN
     Route: 048
     Dates: start: 20140101, end: 20140521
  8. ESOMEPRAZOLE MAGNESIUM. [Concomitant]
     Active Substance: ESOMEPRAZOLE MAGNESIUM
     Route: 048
     Dates: start: 20140101, end: 20140521
  9. LANOXIN [Concomitant]
     Active Substance: DIGOXIN
     Route: 048
     Dates: start: 20140101, end: 20140521
  10. APIDRA SOLOSTAR [Suspect]
     Active Substance: INSULIN GLULISINE
     Indication: DIABETES MELLITUS
     Route: 058
     Dates: start: 20140101, end: 20140521
  11. ALLOPURINOL. [Concomitant]
     Active Substance: ALLOPURINOL
     Route: 048
     Dates: start: 20140101, end: 20140521

REACTIONS (2)
  - Diabetic coma [Recovered/Resolved]
  - Hypoglycaemia [Recovered/Resolved]

NARRATIVE: CASE EVENT DATE: 20140522
